FAERS Safety Report 25132107 (Version 1)
Quarter: 2025Q1

REPORT INFORMATION
  Report Type: Report from Study
  Country: CA (occurrence: CA)
  Receive Date: 20250328
  Receipt Date: 20250328
  Transmission Date: 20250408
  Serious: Yes (Death, Other)
  Sender: Alvotech
  Company Number: CA-JAMP PHARMA CORPORATION-2025-JAM-CA-00464

PATIENT
  Age: 74 Year
  Sex: Female
  Weight: 60 kg

DRUGS (1)
  1. USTEKINUMAB [Suspect]
     Active Substance: USTEKINUMAB
     Indication: Psoriasis
     Dosage: 45 MILLIGRAM, EVERY 12 WEEKS
     Route: 058
     Dates: start: 20240807

REACTIONS (1)
  - Death [Fatal]
